FAERS Safety Report 25165545 (Version 1)
Quarter: 2025Q2

REPORT INFORMATION
  Report Type: Spontaneous
  Country: IT (occurrence: IT)
  Receive Date: 20250407
  Receipt Date: 20250407
  Transmission Date: 20250716
  Serious: Yes (Hospitalization, Other)
  Sender: BRISTOL MYERS SQUIBB
  Company Number: None

PATIENT
  Age: 82 Year
  Sex: Male

DRUGS (2)
  1. OPDIVO [Suspect]
     Active Substance: NIVOLUMAB
     Indication: Pleural mesothelioma malignant
     Dosage: 360 MG EVERY 21 DAYS COMBINED WITH IPILIMUMAB 1 MG/KG POSTPONED TO CYCLE II; ONLY 3 CYCLES PERFORMED
     Route: 042
     Dates: start: 20241127, end: 20250116
  2. YERVOY [Suspect]
     Active Substance: IPILIMUMAB
     Indication: Pleural mesothelioma malignant
     Dosage: 1 MG/KG EVERY 21 DAYS IN COMBINATION WITH NIVOLUMAB 360 MG
     Route: 042
     Dates: start: 20241127, end: 20250116

REACTIONS (5)
  - Diarrhoea [Not Recovered/Not Resolved]
  - Pyrexia [Recovering/Resolving]
  - Asthenia [Not Recovered/Not Resolved]
  - Fungal infection [Recovering/Resolving]
  - Conjunctivitis [Recovering/Resolving]

NARRATIVE: CASE EVENT DATE: 20241130
